FAERS Safety Report 15909030 (Version 4)
Quarter: 2019Q2

REPORT INFORMATION
  Report Type: Report from Study
  Country: US (occurrence: US)
  Receive Date: 20190204
  Receipt Date: 20190626
  Transmission Date: 20190711
  Serious: Yes (Hospitalization, Other)
  Sender: FDA-Public Use
  Company Number: US-ACTELION-A-NJ2018-178031

PATIENT
  Age: 81 Year
  Sex: Female

DRUGS (13)
  1. METOPROLOL. [Concomitant]
     Active Substance: METOPROLOL
  2. DIGOX [Concomitant]
     Active Substance: DIGOXIN
  3. MOMETASONE [Concomitant]
     Active Substance: MOMETASONE
  4. TRACLEER [Concomitant]
     Active Substance: BOSENTAN
     Indication: PULMONARY ARTERIAL HYPERTENSION
  5. CETIRIZINE [Concomitant]
     Active Substance: CETIRIZINE HYDROCHLORIDE
  6. PANTOPRAZOLE [Concomitant]
     Active Substance: PANTOPRAZOLE
  7. SILDENAFIL. [Concomitant]
     Active Substance: SILDENAFIL
  8. PRAMOXINE HC [Concomitant]
  9. LEVOTHYROXIN [Concomitant]
     Active Substance: LEVOTHYROXINE
  10. ACYCLOVIR. [Concomitant]
     Active Substance: ACYCLOVIR
  11. OPSUMIT [Suspect]
     Active Substance: MACITENTAN
     Indication: PULMONARY ARTERIAL HYPERTENSION
     Dosage: 10 MG, QD
     Route: 048
     Dates: start: 20180202
  12. FLUTICASON [Concomitant]
     Active Substance: FLUTICASONE
  13. WARFARIN [Concomitant]
     Active Substance: WARFARIN

REACTIONS (3)
  - Fall [Recovered/Resolved]
  - Hepatic cirrhosis [Unknown]
  - Liver function test abnormal [Not Recovered/Not Resolved]

NARRATIVE: CASE EVENT DATE: 20190122
